FAERS Safety Report 23315169 (Version 1)
Quarter: 2023Q4

REPORT INFORMATION
  Report Type: Spontaneous
  Country: US (occurrence: US)
  Receive Date: 20231219
  Receipt Date: 20231219
  Transmission Date: 20240110
  Serious: No
  Sender: FDA-Public Use
  Company Number: US-CORIUM, LLC-2023COR000240

PATIENT
  Age: 28 Year
  Sex: Male

DRUGS (1)
  1. AZSTARYS [Suspect]
     Active Substance: DEXMETHYLPHENIDATE HYDROCHLORIDE\SERDEXMETHYLPHENIDATE CHLORIDE
     Indication: Attention deficit hyperactivity disorder
     Dosage: 39.2 MG/7.8 MG QD
     Route: 065

REACTIONS (6)
  - Panic attack [Recovered/Resolved]
  - Depressed mood [Recovered/Resolved]
  - Crying [Recovered/Resolved]
  - Bruxism [Unknown]
  - Heart rate increased [Recovered/Resolved]
  - Irritability [Recovered/Resolved]
